FAERS Safety Report 24250401 (Version 1)
Quarter: 2024Q3

REPORT INFORMATION
  Report Type: Spontaneous
  Country: IN (occurrence: IN)
  Receive Date: 20240826
  Receipt Date: 20240826
  Transmission Date: 20241017
  Serious: Yes (Death)
  Sender: PFIZER
  Company Number: IN-PFIZER INC-PV202400068336

PATIENT
  Age: 55 Year
  Sex: Male

DRUGS (3)
  1. DACOMITINIB [Suspect]
     Active Substance: DACOMITINIB
     Dosage: 45 MG
  2. DACOMITINIB [Suspect]
     Active Substance: DACOMITINIB
     Dosage: 35 UNK
     Dates: start: 20230801
  3. DACOMITINIB [Suspect]
     Active Substance: DACOMITINIB
     Dosage: 30 UNK
     Route: 048
     Dates: start: 20230801, end: 20240813

REACTIONS (1)
  - Death [Fatal]
